FAERS Safety Report 5053987-0 (Version None)
Quarter: 2006Q3

REPORT INFORMATION
  Report Type: 
  Country: None (occurrence: None)
  Receive Date: 20060712
  Receipt Date: 20060210
  Transmission Date: 20061208
  Serious: Yes (Hospitalization)
  Sender: FDA-Public Use
  Company Number: WAES 0602KOR00013

PATIENT
  Age: 5 Year
  Sex: Male

DRUGS (1)
  1. SINGULAIR [Suspect]
     Indication: ASTHMA
     Dosage: 5 MG/DAILY PO
     Route: 048
     Dates: start: 20050624

REACTIONS (2)
  - ASTHMA [None]
  - CONDITION AGGRAVATED [None]
